FAERS Safety Report 17620333 (Version 1)
Quarter: 2020Q2

REPORT INFORMATION
  Report Type: Spontaneous
  Country: DE (occurrence: DE)
  Receive Date: 20200403
  Receipt Date: 20200403
  Transmission Date: 20200713
  Serious: Yes (Other)
  Sender: FDA-Public Use
  Company Number: DE-DRREDDYS-GER/GER/20/0121312

PATIENT
  Age: 17 Year
  Sex: Male

DRUGS (2)
  1. FLUOXETIN BETA 20, TABLETTEN [Suspect]
     Active Substance: FLUOXETINE HYDROCHLORIDE
     Indication: ACUTE PSYCHOSIS
     Route: 048
     Dates: start: 201911
  2. RISPERIDON [Concomitant]
     Active Substance: RISPERIDONE
     Indication: ACUTE PSYCHOSIS

REACTIONS (3)
  - Hypertonia [Not Recovered/Not Resolved]
  - Hemiparesis [Not Recovered/Not Resolved]
  - Myalgia [Not Recovered/Not Resolved]

NARRATIVE: CASE EVENT DATE: 202003
